FAERS Safety Report 8129040-6 (Version None)
Quarter: 2012Q1

REPORT INFORMATION
  Report Type: 
  Country: None (occurrence: None)
  Receive Date: 20120210
  Receipt Date: 20110815
  Transmission Date: 20120608
  Serious: No
  Sender: FDA-Public Use
  Company Number: US-BRISTOL-MYERS SQUIBB COMPANY-15971369

PATIENT
  Age: 64 Year
  Sex: Male

DRUGS (3)
  1. METHOTREXATE [Concomitant]
  2. SULFASALAZINE [Concomitant]
  3. ORENCIA [Suspect]

REACTIONS (1)
  - URTICARIA [None]
